FAERS Safety Report 6771783-0 (Version None)
Quarter: 2010Q2

REPORT INFORMATION
  Report Type: 
  Country: None (occurrence: None)
  Receive Date: 20100616
  Receipt Date: 20100209
  Transmission Date: 20101027
  Serious: No
  Sender: FDA-Public Use
  Company Number: US-ASTRAZENECA-2010SE06150

PATIENT
  Age: 66 Year
  Sex: Female

DRUGS (1)
  1. ATACAND [Suspect]
     Route: 048

REACTIONS (4)
  - DIZZINESS [None]
  - FALL [None]
  - STRESS FRACTURE [None]
  - UPPER LIMB FRACTURE [None]
